FAERS Safety Report 4840571-4 (Version None)
Quarter: 2005Q4

REPORT INFORMATION
  Report Type: 
  Country: None (occurrence: None)
  Receive Date: 20051130
  Receipt Date: 20051020
  Transmission Date: 20060501
  Serious: No
  Sender: FDA-Public Use
  Company Number: US-BRISTOL-MYERS SQUIBB COMPANY-13152129

PATIENT
  Age: 48 Year
  Sex: Female
  Weight: 79 kg

DRUGS (3)
  1. ERBITUX [Suspect]
     Indication: APPENDIX DISORDER
     Route: 042
     Dates: start: 20050918, end: 20050918
  2. HAIR PRODUCT [Suspect]
  3. LOPRESSOR [Concomitant]

REACTIONS (9)
  - DRUG INTERACTION [None]
  - ERYTHEMA [None]
  - HAIR TEXTURE ABNORMAL [None]
  - LOCAL SWELLING [None]
  - NAUSEA [None]
  - PRURITUS [None]
  - RASH PUSTULAR [None]
  - SCAR [None]
  - SKIN HAEMORRHAGE [None]
